FAERS Safety Report 25252948 (Version 2)
Quarter: 2025Q2

REPORT INFORMATION
  Report Type: Report from Study
  Country: US (occurrence: US)
  Receive Date: 20250430
  Receipt Date: 20250617
  Transmission Date: 20250717
  Serious: Yes (Hospitalization, Other)
  Sender: ABBVIE
  Company Number: US-ABBVIE-6254208

PATIENT
  Age: 21 Year
  Sex: Male

DRUGS (2)
  1. SKYRIZI [Suspect]
     Active Substance: RISANKIZUMAB-RZAA
     Indication: Colitis ulcerative
     Route: 058
     Dates: start: 20250131
  2. SKYRIZI [Suspect]
     Active Substance: RISANKIZUMAB-RZAA
     Route: 058
     Dates: start: 20250206

REACTIONS (4)
  - Ulcer haemorrhage [Unknown]
  - Colitis ulcerative [Unknown]
  - Drug ineffective [Not Recovered/Not Resolved]
  - Postoperative abscess [Not Recovered/Not Resolved]

NARRATIVE: CASE EVENT DATE: 20250101
